FAERS Safety Report 23723008 (Version 1)
Quarter: 2024Q2

REPORT INFORMATION
  Report Type: Spontaneous
  Country: US (occurrence: US)
  Receive Date: 20240409
  Receipt Date: 20240409
  Transmission Date: 20240716
  Serious: Yes (Other)
  Sender: FDA-Public Use
  Company Number: US-PFIZER INC-PV202400045054

PATIENT
  Age: 57 Year
  Sex: Female

DRUGS (5)
  1. IBRANCE [Suspect]
     Active Substance: PALBOCICLIB
     Indication: Breast cancer
     Dosage: TAKE 1 PO DAILY FOR 21 DAYS. THEN HOLD FOR 7 DAYS. REPEAT
     Route: 048
     Dates: start: 20230412
  2. IBRANCE [Suspect]
     Active Substance: PALBOCICLIB
     Dosage: TAKE 1 TABLET DAILY FOR 21 DAYS. HOLD FOR 7 DAYS, AND REPEAT
     Dates: start: 20230726
  3. IBRANCE [Suspect]
     Active Substance: PALBOCICLIB
     Dosage: TAKE 1 TABLET BY MOUTH DAILY FOR 3 WEEKS, THEN HOLD FOR 1 WEEK. REPEAT.
     Route: 048
     Dates: start: 20230831
  4. LETROZOLE [Concomitant]
     Active Substance: LETROZOLE
     Dosage: UNK
     Dates: start: 20230412
  5. FASLODEX [Concomitant]
     Active Substance: FULVESTRANT
     Dosage: UNK

REACTIONS (3)
  - Cytopenia [Unknown]
  - Anaemia [Unknown]
  - Neoplasm progression [Unknown]
